FAERS Safety Report 16780345 (Version 2)
Quarter: 2019Q3

REPORT INFORMATION
  Report Type: Report from Study
  Country: US (occurrence: US)
  Receive Date: 20190906
  Receipt Date: 20190918
  Transmission Date: 20191005
  Serious: Yes (Hospitalization)
  Sender: FDA-Public Use
  Company Number: US-JNJFOC-20190726436

PATIENT
  Age: 83 Year
  Sex: Female

DRUGS (8)
  1. IMBRUVICA [Suspect]
     Active Substance: IBRUTINIB
     Indication: WALDENSTROM^S MACROGLOBULINAEMIA
     Dosage: 280 MG, QD
     Route: 048
     Dates: start: 201907
  2. VALSARTAN. [Concomitant]
     Active Substance: VALSARTAN
  3. NEURONTIN [Concomitant]
     Active Substance: GABAPENTIN
  4. MULTIVITAMINS                      /00116001/ [Concomitant]
     Active Substance: VITAMINS
  5. PROCRIT [Concomitant]
     Active Substance: ERYTHROPOIETIN
  6. VALSARTAN AND HYDROCHLOROTHIAZIDE [Concomitant]
     Active Substance: HYDROCHLOROTHIAZIDE\VALSARTAN
  7. MAGNESIUM [Concomitant]
     Active Substance: MAGNESIUM
  8. DEXILANT [Concomitant]
     Active Substance: DEXLANSOPRAZOLE

REACTIONS (3)
  - Irritable bowel syndrome [Recovered/Resolved]
  - Off label use [Unknown]
  - Incorrect dose administered [Unknown]

NARRATIVE: CASE EVENT DATE: 201907
